FAERS Safety Report 10080362 (Version 3)
Quarter: 2014Q2

REPORT INFORMATION
  Report Type: Report from Study
  Country: CA (occurrence: CA)
  Receive Date: 20140415
  Receipt Date: 20140429
  Transmission Date: 20141212
  Serious: Yes (Other)
  Sender: FDA-Public Use
  Company Number: CA-ABBVIE-14P-028-1207844-00

PATIENT
  Sex: Female
  Weight: 72.64 kg

DRUGS (14)
  1. HUMIRA [Suspect]
     Indication: PSORIATIC ARTHROPATHY
     Route: 058
     Dates: start: 20121103, end: 20140213
  2. TARIET [Concomitant]
     Indication: GASTROOESOPHAGEAL REFLUX DISEASE
     Route: 048
  3. XARELTO [Concomitant]
     Indication: ANTICOAGULANT THERAPY
     Dosage: UNKNOWN
  4. METHOTREXATE [Concomitant]
     Indication: PSORIATIC ARTHROPATHY
     Route: 048
  5. FOLIC ACID [Concomitant]
     Indication: VITAMIN SUPPLEMENTATION
     Route: 048
  6. QUININE [Concomitant]
     Indication: MUSCLE SPASMS
     Route: 048
  7. KETOROLAC [Concomitant]
     Indication: MIGRAINE
     Route: 048
  8. TOPICAL [Concomitant]
     Indication: PSORIASIS
     Route: 061
  9. PREMARIN [Concomitant]
     Indication: PRODUCT USED FOR UNKNOWN INDICATION
     Dosage: UNKNOWN
     Route: 048
  10. LEVOFLOXACIN [Concomitant]
     Indication: PSORIATIC ARTHROPATHY
     Dosage: UNKNOWN
     Route: 048
  11. LEFLUNOMIDE [Concomitant]
     Indication: PSORIATIC ARTHROPATHY
     Dosage: UNKNOWN
     Route: 048
  12. VITAMINS [Concomitant]
     Indication: VITAMIN SUPPLEMENTATION
  13. NITRAZEPAM [Concomitant]
     Indication: SLEEP DISORDER
     Dosage: ONCE A DAY AT BEDTIME
     Route: 048
  14. ELTROXIN [Concomitant]
     Indication: THYROID DISORDER
     Dosage: UNKNOWN
     Route: 048

REACTIONS (8)
  - Rotator cuff syndrome [Recovered/Resolved]
  - Spinal column stenosis [Not Recovered/Not Resolved]
  - Body height decreased [Not Recovered/Not Resolved]
  - Insomnia [Not Recovered/Not Resolved]
  - Thyroid disorder [Not Recovered/Not Resolved]
  - Macular degeneration [Not Recovered/Not Resolved]
  - Musculoskeletal pain [Not Recovered/Not Resolved]
  - Pain [Not Recovered/Not Resolved]
